FAERS Safety Report 5740075-0 (Version None)
Quarter: 2008Q2

REPORT INFORMATION
  Report Type: 
  Country: None (occurrence: None)
  Receive Date: 20080516
  Receipt Date: 20080507
  Transmission Date: 20081010
  Serious: Yes (Other)
  Sender: FDA-Public Use
  Company Number: PHHY2008AU07372

PATIENT
  Age: 83 Year
  Sex: Female
  Weight: 69 kg

DRUGS (1)
  1. FAMVIR [Suspect]
     Indication: HERPES ZOSTER
     Dosage: 750 MG
     Route: 048
     Dates: start: 19991006, end: 19991009

REACTIONS (3)
  - ANOREXIA [None]
  - HALLUCINATION [None]
  - VISUAL DISTURBANCE [None]
